FAERS Safety Report 5781379-5 (Version None)
Quarter: 2008Q2

REPORT INFORMATION
  Report Type: 
  Country: None (occurrence: None)
  Receive Date: 20080619
  Receipt Date: 20080612
  Transmission Date: 20081010
  Serious: No
  Sender: FDA-Public Use
  Company Number: 163-21880-08060804

PATIENT
  Age: 82 Year
  Sex: Male
  Weight: 62.5964 kg

DRUGS (2)
  1. REVLIMID [Suspect]
     Indication: MULTIPLE MYELOMA
     Dosage: 15 MG, 3X WEEKLY AFTER DIALYSIS, ORAL, 25 MG, 3 WEEKS ON 1 WEEK OFF, ORAL
     Route: 048
     Dates: start: 20080503, end: 20080524
  2. REVLIMID [Suspect]
     Indication: MULTIPLE MYELOMA
     Dosage: 15 MG, 3X WEEKLY AFTER DIALYSIS, ORAL, 25 MG, 3 WEEKS ON 1 WEEK OFF, ORAL
     Route: 048
     Dates: start: 20080614

REACTIONS (2)
  - DIALYSIS [None]
  - RENAL DISORDER [None]
